FAERS Safety Report 10657681 (Version 1)
Quarter: 2014Q4

REPORT INFORMATION
  Report Type: Spontaneous
  Country: US (occurrence: None)
  Receive Date: 20141205
  Receipt Date: 20141205
  Transmission Date: 20150529
  Serious: Yes (Other)
  Sender: FDA-Public Use
  Company Number: 163-POMAL-14082756

PATIENT
  Age: 62 Year
  Sex: Male

DRUGS (19)
  1. DECADRON(DEXAMETHASONE) [Concomitant]
  2. ZOMETA(ZOLDRONIC ACID) [Concomitant]
  3. SENNA(SENNA ALEXANDRINA) [Concomitant]
  4. FENTANYL(FENTANYL) [Concomitant]
     Active Substance: FENTANYL CITRATE
  5. VITAMIN B6(PYRIDOXINE HYDROCHLORIDE) [Concomitant]
  6. VITAMIN B12(CYANOCOBALAMIN) [Concomitant]
  7. ACYCLOVIR(ACICLOVIR) [Concomitant]
  8. METOCLOPRAMIDE(METOCLOPRAMIDE) [Concomitant]
     Active Substance: METOCLOPRAMIDE
  9. PROTONIX(PANTOPRAZOLE SODIUM SESQUIHYDRATE) [Concomitant]
  10. PREDNISONE(PREDNISONE) [Concomitant]
  11. FOLIC ACID(FOLIC ACID) [Concomitant]
  12. XARELTO(RIVARBOXABAN) [Concomitant]
  13. OXYCODONE(OXYCODONE) [Concomitant]
     Active Substance: OXYCODONE
  14. ATIVAN(LORAZEPAM) [Concomitant]
  15. POMALYST [Suspect]
     Active Substance: POMALIDOMIDE
     Indication: PLASMA CELL MYELOMA
     Dosage: 4 MG, 21 IN 28 D, PO
     Route: 048
     Dates: start: 20140721, end: 20140910
  16. LOVENEOX(HEPARIN-FRACTION, SODIUM SALT) [Concomitant]
  17. COLCHICINE(COLCHICINE) [Concomitant]
  18. MODAFINIAL(MODAFINIL) [Concomitant]
  19. ZOFRAN(ONDANSETRON) [Concomitant]

REACTIONS (7)
  - Renal impairment [None]
  - Back pain [None]
  - Dehydration [None]
  - Decreased appetite [None]
  - Hypersomnia [None]
  - Stomatitis [None]
  - Fatigue [None]

NARRATIVE: CASE EVENT DATE: 20140810
